FAERS Safety Report 8805645 (Version 2)
Quarter: 2012Q4

REPORT INFORMATION
  Report Type: 
  Country: US (occurrence: US)
  Receive Date: 20120924
  Receipt Date: 20121008
  Transmission Date: 20130627
  Serious: Yes (Hospitalization)
  Sender: FDA-Public Use
  Company Number: US-009507513-1209USA008038

PATIENT
  Age: 70 Year
  Sex: Female

DRUGS (6)
  1. TIMOLOL MALEATE [Suspect]
     Indication: OPEN ANGLE GLAUCOMA
     Route: 061
  2. HYDROCHLOROTHIAZIDE [Concomitant]
  3. LISINOPRIL [Concomitant]
  4. SIMVASTATIN [Concomitant]
  5. BUPROPION HYDROCHLORIDE [Concomitant]
  6. BRIMONIDINE TARTRATE [Concomitant]
     Route: 061

REACTIONS (1)
  - Sick sinus syndrome [Recovered/Resolved]
